FAERS Safety Report 16773135 (Version 5)
Quarter: 2019Q4

REPORT INFORMATION
  Report Type: Spontaneous
  Country: JP (occurrence: JP)
  Receive Date: 20190904
  Receipt Date: 20191121
  Transmission Date: 20200122
  Serious: Yes (Other)
  Sender: FDA-Public Use
  Company Number: JP-GILEAD-2019-0426276

PATIENT
  Age: 42 Year
  Sex: Male
  Weight: 64.5 kg

DRUGS (8)
  1. URSO [Concomitant]
     Active Substance: URSODIOL
     Indication: CHRONIC HEPATITIS C
     Dosage: 100 MG, TID
     Route: 048
     Dates: start: 20190118
  2. MUCOSTA [Concomitant]
     Active Substance: REBAMIPIDE
     Indication: NASOPHARYNGITIS
     Dosage: 1 DOSAGE FORM, PRN
     Route: 048
     Dates: start: 20190823, end: 20190829
  3. EPCLUSA [Suspect]
     Active Substance: SOFOSBUVIR\VELPATASVIR
     Indication: CHRONIC HEPATITIS C
     Dosage: 1 DOSAGE FORM, QD
     Route: 048
     Dates: start: 20190615
  4. REBETOL [Suspect]
     Active Substance: RIBAVIRIN
     Indication: CHRONIC HEPATITIS C
     Dosage: 400 MG, BID
     Route: 048
     Dates: start: 20190615
  5. PL [Concomitant]
     Active Substance: ACETAMINOPHEN\CAFFEINE\PROMETHAZINE\SALICYLAMIDE
     Indication: NASOPHARYNGITIS
     Dosage: 1 DOSAGE FORM, TID
     Route: 048
     Dates: start: 20190823, end: 20190829
  6. LOXONIN [Concomitant]
     Active Substance: LOXOPROFEN SODIUM
     Indication: NASOPHARYNGITIS
     Dosage: 60 MG, PRN
     Route: 048
     Dates: start: 20190823, end: 20190829
  7. LOPEMIN [LOPERAMIDE HYDROCHLORIDE] [Concomitant]
     Active Substance: LOPERAMIDE HYDROCHLORIDE
  8. REBETOL [Suspect]
     Active Substance: RIBAVIRIN
     Dosage: 400 MG, BID
     Route: 048
     Dates: start: 20190907

REACTIONS (3)
  - Nasopharyngitis [Recovered/Resolved]
  - Seizure [Recovered/Resolved]
  - Dehydration [Recovered/Resolved]

NARRATIVE: CASE EVENT DATE: 20190823
